FAERS Safety Report 9945271 (Version 1)
Quarter: 2014Q1

REPORT INFORMATION
  Report Type: Report from Study
  Country: US (occurrence: US)
  Receive Date: 20140303
  Receipt Date: 20140303
  Transmission Date: 20141002
  Serious: No
  Sender: FDA-Public Use
  Company Number: US-ABBVIE-13P-163-1053088-00

PATIENT
  Age: 11 Year
  Sex: Male
  Weight: 35.87 kg

DRUGS (3)
  1. HUMIRA [Suspect]
     Indication: CROHN^S DISEASE
     Dates: start: 201301, end: 201301
  2. HUMIRA [Suspect]
     Dates: start: 201301, end: 201301
  3. HUMIRA [Suspect]
     Dates: start: 201302

REACTIONS (4)
  - Off label use [Not Recovered/Not Resolved]
  - Device malfunction [Unknown]
  - Injection site haemorrhage [Unknown]
  - Incorrect dose administered [Unknown]
